FAERS Safety Report 24731390 (Version 2)
Quarter: 2025Q1

REPORT INFORMATION
  Report Type: Spontaneous
  Country: JP (occurrence: JP)
  Receive Date: 20241213
  Receipt Date: 20250213
  Transmission Date: 20250409
  Serious: Yes (Hospitalization)
  Sender: AMNEAL
  Company Number: JP-AMNEAL PHARMACEUTICALS-2024-AMRX-04498

PATIENT

DRUGS (3)
  1. ONGENTYS [Suspect]
     Active Substance: OPICAPONE
     Indication: Parkinson^s disease
     Route: 048
  2. AZILECT [RASAGILINE MESYLATE] [Concomitant]
     Indication: Product used for unknown indication
     Route: 065
  3. LEVODOPA [Concomitant]
     Active Substance: LEVODOPA
     Indication: Product used for unknown indication
     Route: 065

REACTIONS (4)
  - Cyanosis [Recovered/Resolved]
  - Epinephrine increased [Unknown]
  - Blood pressure fluctuation [Recovered/Resolved]
  - Dyskinesia [Recovered/Resolved]
